FAERS Safety Report 4876450-6 (Version None)
Quarter: 2005Q4

REPORT INFORMATION
  Report Type: 
  Country: None (occurrence: None)
  Receive Date: 20051206
  Receipt Date: 20051010
  Transmission Date: 20060501
  Serious: No
  Sender: FDA-Public Use
  Company Number: USA0510110487

PATIENT
  Age: 44 Year
  Sex: Female

DRUGS (2)
  1. CYMBALTA [Suspect]
     Indication: DEPRESSION
     Dosage: 30 MG DAY
     Dates: start: 20050901
  2. ESTROGEN NOS [Concomitant]

REACTIONS (5)
  - ANORGASMIA [None]
  - GASTROINTESTINAL DISORDER [None]
  - IRRITABILITY [None]
  - PAIN [None]
  - WEIGHT DECREASED [None]
